FAERS Safety Report 4774326-6 (Version None)
Quarter: 2005Q3

REPORT INFORMATION
  Report Type: 
  Country: None (occurrence: None)
  Receive Date: 20050914
  Receipt Date: 20050302
  Transmission Date: 20060218
  Serious: Yes (Hospitalization)
  Sender: FDA-Public Use
  Company Number: 163-20785-05030091

PATIENT
  Age: 68 Year
  Sex: Female
  Weight: 47.6 kg

DRUGS (15)
  1. THALOMID [Suspect]
     Indication: NON-SMALL CELL LUNG CANCER
     Dosage: 200 MG, QD, ORAL
     Route: 048
     Dates: start: 20050125
  2. DOCETAXEL (DOCETAXEL )(UNKNOWN) [Suspect]
     Indication: NON-SMALL CELL LUNG CANCER
     Dosage: 45 MG, INTRAVENOUS
     Route: 042
     Dates: start: 20050201
  3. DOCETAXEL (DOCETAXEL )(UNKNOWN) [Suspect]
     Indication: NON-SMALL CELL LUNG CANCER
     Dosage: 45 MG, INTRAVENOUS
     Route: 042
     Dates: start: 20050208
  4. DOCETAXEL (DOCETAXEL )(UNKNOWN) [Suspect]
     Indication: NON-SMALL CELL LUNG CANCER
     Dosage: 45 MG, INTRAVENOUS
     Route: 042
     Dates: start: 20050215
  5. ADVAIR DISKUS (SERETIDE MITE) [Concomitant]
  6. SPIRIVA INHALER (TIOTROPIUM BROMIDE) [Concomitant]
  7. PREDNISONE [Concomitant]
  8. XANAX [Concomitant]
  9. DILANTIN [Concomitant]
  10. TAMIFLU [Concomitant]
  11. HUMULIN R INSULIN (INSULIN HUMAN) [Concomitant]
  12. FAMOTIDINE [Concomitant]
  13. AVELOX [Concomitant]
  14. DARVOCET [Concomitant]
  15. SODIUM CHLORIDE [Concomitant]

REACTIONS (3)
  - DYSPNOEA [None]
  - INFLUENZA [None]
  - PNEUMONIA [None]
